FAERS Safety Report 23513817 (Version 2)
Quarter: 2024Q3

REPORT INFORMATION
  Report Type: Report from Study
  Country: BR (occurrence: BR)
  Receive Date: 20240212
  Receipt Date: 20240812
  Transmission Date: 20241016
  Serious: No
  Sender: NOVARTIS
  Company Number: BR-002147023-NVSC2024BR025065

PATIENT
  Sex: Female

DRUGS (1)
  1. KISQALI [Suspect]
     Active Substance: RIBOCICLIB
     Indication: Product used for unknown indication
     Dosage: UNK
     Route: 065

REACTIONS (2)
  - Ill-defined disorder [Unknown]
  - Drug ineffective [Unknown]
